FAERS Safety Report 9258741 (Version 2)
Quarter: 2013Q4

REPORT INFORMATION
  Report Type: Spontaneous
  Country: GB (occurrence: GB)
  Receive Date: 20130426
  Receipt Date: 20131011
  Transmission Date: 20140711
  Serious: Yes (Other)
  Sender: FDA-Public Use
  Company Number: GB-ASTRAZENECA-2013SE26282

PATIENT
  Age: 32 Year
  Sex: Male
  Weight: 96.3 kg

DRUGS (7)
  1. FELODIPINE [Suspect]
     Indication: HYPERTENSION
     Route: 048
     Dates: start: 20130320, end: 20130410
  2. TELAPREVIR [Interacting]
     Indication: HEPATITIS C
     Route: 048
     Dates: start: 20130225, end: 20130410
  3. PEGYLATED INTERFERON NOS [Suspect]
     Indication: HEPATITIS C
     Route: 058
     Dates: start: 20130121, end: 20130410
  4. RIBAVIRIN [Suspect]
     Indication: HEPATITIS C
     Route: 048
     Dates: start: 20130121, end: 20130410
  5. ALLOPURINOL [Concomitant]
  6. ATENOLOL [Concomitant]
  7. RAMIPRIL [Concomitant]

REACTIONS (2)
  - Drug interaction [Unknown]
  - Renal impairment [Not Recovered/Not Resolved]
